FAERS Safety Report 9778469 (Version 3)
Quarter: 2014Q1

REPORT INFORMATION
  Report Type: Report from Study
  Country: JP (occurrence: JP)
  Receive Date: 20131223
  Receipt Date: 20140127
  Transmission Date: 20141002
  Serious: Yes (Hospitalization, Other)
  Sender: FDA-Public Use
  Company Number: JP-ASTELLAS-2013JP012778

PATIENT
  Age: 0 None
  Sex: Male
  Weight: 1.94 kg

DRUGS (6)
  1. TACROLIMUS CAPSULES [Suspect]
     Indication: FOETAL EXPOSURE DURING PREGNANCY
     Dosage: 3 MG, UID/QD
     Route: 063
     Dates: start: 2013
  2. TACROLIMUS CAPSULES [Suspect]
     Indication: EXPOSURE DURING BREAST FEEDING
     Dosage: 3 MG, UID/QD
     Route: 064
     Dates: end: 20130712
  3. GASTER [Suspect]
     Indication: FOETAL EXPOSURE DURING PREGNANCY
     Dosage: 20 MG, UNKNOWN/D
     Route: 063
     Dates: start: 2013
  4. GASTER [Suspect]
     Indication: EXPOSURE DURING BREAST FEEDING
     Dosage: 20 MG, UNKNOWN/D
     Route: 064
     Dates: end: 20130712
  5. PREDNISOLONE [Concomitant]
     Indication: FOETAL EXPOSURE DURING PREGNANCY
     Dosage: 10 MG, UNKNOWN/D
     Route: 064
     Dates: end: 20130712
  6. PREDNISOLONE [Concomitant]
     Indication: EXPOSURE DURING BREAST FEEDING
     Dosage: 10 MG, UNKNOWN/D
     Route: 063
     Dates: start: 2013

REACTIONS (3)
  - Exposure during breast feeding [Unknown]
  - Premature baby [Unknown]
  - Neonatal asphyxia [Recovered/Resolved]
